FAERS Safety Report 9595125 (Version 1)
Quarter: 2013Q4

REPORT INFORMATION
  Report Type: Spontaneous
  Country: US (occurrence: US)
  Receive Date: 20131004
  Receipt Date: 20131004
  Transmission Date: 20140711
  Serious: Yes (Other)
  Sender: FDA-Public Use
  Company Number: US-BAYER-2013-119875

PATIENT
  Age: 36 Year
  Sex: Female

DRUGS (11)
  1. YAZ [Suspect]
     Indication: MENORRHAGIA
  2. DIHYDROERGOTAMIN [Concomitant]
     Dosage: 1 MG/ML, UNK
  3. ACETAMINOPHEN W/PROPOXYPHENE [Concomitant]
     Dosage: 100-650 MG
  4. TOPAMAX [Concomitant]
     Dosage: 200 MG, UNK
  5. HYDROCODONE W/IBUPROFEN [Concomitant]
     Dosage: 7.5-200 MG
  6. BUTORPHANOL [Concomitant]
     Dosage: 10 MG/ML, UNK
  7. CITALOPRAM [Concomitant]
     Dosage: 40 MG, UNK
  8. ALPRAZOLAM [Concomitant]
     Dosage: 0.25 MG, UNK
  9. DEPAKOTE [Concomitant]
     Dosage: 250 MG, UNK
  10. AMBIEN [Concomitant]
     Dosage: 10 MG, UNK
  11. FROVA [Concomitant]
     Dosage: 2.5 MG, UNK

REACTIONS (2)
  - Pulmonary embolism [None]
  - Thrombophlebitis superficial [None]
